FAERS Safety Report 14785750 (Version 4)
Quarter: 2018Q3

REPORT INFORMATION
  Report Type: Report from Study
  Country: SE (occurrence: SE)
  Receive Date: 20180420
  Receipt Date: 20180919
  Transmission Date: 20181010
  Serious: Yes (Other)
  Sender: FDA-Public Use
  Company Number: PHHO2018SE003468

PATIENT
  Age: 68 Year
  Sex: Female
  Weight: 55 kg

DRUGS (9)
  1. BRICANYL [Concomitant]
     Active Substance: TERBUTALINE SULFATE
     Indication: ASTHMA
     Dosage: 0.5 MG, PRN
     Route: 055
     Dates: start: 20120116
  2. OXYCONTIN [Concomitant]
     Active Substance: OXYCODONE HYDROCHLORIDE
     Indication: TOOTHACHE
     Dosage: 10 MG, BID
     Route: 048
     Dates: start: 20180228
  3. OXYNORM [Concomitant]
     Active Substance: OXYCODONE HYDROCHLORIDE
     Indication: TOOTHACHE
     Dosage: 5 MG, PRN
     Route: 048
     Dates: start: 20180226
  4. ALVEDON [Concomitant]
     Active Substance: ACETAMINOPHEN
     Indication: TOOTHACHE
     Dosage: 665 MG, TID
     Route: 048
     Dates: start: 20180103
  5. ACLASTA [Suspect]
     Active Substance: ZOLEDRONIC ACID
     Indication: METASTASES TO BONE
     Dosage: 4 MG, EVERY MONTH UNTIL 22 MAY 2017 THEN EVERY 3 MONTHS
     Route: 042
     Dates: start: 20160615, end: 20170522
  6. BYL719 [Suspect]
     Active Substance: ALPELISIB
     Indication: BREAST CANCER
     Dosage: 300 MG, UNK
     Route: 048
     Dates: start: 20160620
  7. PULMICORT TURBUHALER [Concomitant]
     Active Substance: BUDESONIDE
     Indication: ASTHMA
     Dosage: 40 UG, PRN
     Route: 055
     Dates: start: 20070605
  8. COMPARATOR FULVESTRANT [Suspect]
     Active Substance: FULVESTRANT
     Indication: BREAST CANCER
     Dosage: 500 MG, QMO (1/MONTH)
     Route: 030
     Dates: start: 20160620
  9. JANUVIA [Concomitant]
     Active Substance: SITAGLIPTIN PHOSPHATE
     Indication: HYPERGLYCAEMIA
     Dosage: 100 MG, QD
     Route: 048
     Dates: start: 20171005

REACTIONS (1)
  - Osteonecrosis of jaw [Recovered/Resolved]

NARRATIVE: CASE EVENT DATE: 20180108
